FAERS Safety Report 12723442 (Version 2)
Quarter: 2016Q3

REPORT INFORMATION
  Report Type: Spontaneous
  Country: PL (occurrence: PL)
  Receive Date: 20160908
  Receipt Date: 20160919
  Transmission Date: 20161109
  Serious: Yes (Other)
  Sender: FDA-Public Use
  Company Number: PL-SUN PHARMACEUTICAL INDUSTRIES LTD-2013R1-68669

PATIENT
  Age: 71 Year
  Sex: Male

DRUGS (4)
  1. NILOTINIB [Suspect]
     Active Substance: NILOTINIB
     Indication: PLASMA CELL MYELOMA
  2. IMATINIB [Suspect]
     Active Substance: IMATINIB
     Indication: PLASMA CELL MYELOMA
  3. IMATINIB [Suspect]
     Active Substance: IMATINIB
     Indication: CHRONIC MYELOID LEUKAEMIA
     Dosage: 400 MG, DAILY
     Route: 065
     Dates: start: 201009
  4. NILOTINIB [Suspect]
     Active Substance: NILOTINIB
     Indication: CHRONIC MYELOID LEUKAEMIA
     Dosage: 800 MG, DAILY
     Route: 065

REACTIONS (3)
  - Drug ineffective [Unknown]
  - Disease recurrence [Unknown]
  - Plasma cell disorder [Unknown]
